FAERS Safety Report 4517056-8 (Version None)
Quarter: 2004Q4

REPORT INFORMATION
  Report Type: 
  Country: None (occurrence: None)
  Receive Date: 20041130
  Receipt Date: 20041117
  Transmission Date: 20050328
  Serious: Yes (Other)
  Sender: FDA-Public Use
  Company Number: 2004095345

PATIENT
  Sex: Female

DRUGS (3)
  1. TOLTERODINE (TOLTERODINE) [Suspect]
     Indication: POLLAKIURIA
     Dosage: ORAL
     Route: 048
     Dates: start: 19991201, end: 20041001
  2. DIANE (ETHYNYL ESTRADIOL + CYPROTERONE ACETATE) [Concomitant]
  3. OLCADIL (CLOXAZOLAM) (CLOXAZOLAM) [Concomitant]

REACTIONS (9)
  - ALOPECIA [None]
  - ANXIETY [None]
  - ASTHENIA [None]
  - AUTOIMMUNE THYROIDITIS [None]
  - DRUG INEFFECTIVE [None]
  - DRUG TOLERANCE [None]
  - HYPERTHYROIDISM [None]
  - IRRITABILITY [None]
  - TACHYCARDIA [None]
